FAERS Safety Report 15957822 (Version 1)
Quarter: 2019Q1

REPORT INFORMATION
  Report Type: Spontaneous
  Country: FR (occurrence: FR)
  Receive Date: 20190213
  Receipt Date: 20190213
  Transmission Date: 20190417
  Serious: Yes (Other)
  Sender: FDA-Public Use
  Company Number: FR-GILEAD-2019-0389710

PATIENT
  Age: 45 Year
  Sex: Female

DRUGS (1)
  1. GENVOYA [Suspect]
     Active Substance: COBICISTAT\ELVITEGRAVIR\EMTRICITABINE\TENOFOVIR ALAFENAMIDE FUMARATE
     Indication: HIV INFECTION
     Dosage: 1 DF, QD; 10 MG, 200 MG, 150/150 MG
     Route: 065
     Dates: start: 201706, end: 201709

REACTIONS (4)
  - CSF virus identified [Recovered/Resolved]
  - Drug ineffective [Unknown]
  - Genotype drug resistance test positive [Unknown]
  - Encephalitis viral [Recovered/Resolved]

NARRATIVE: CASE EVENT DATE: 201709
